FAERS Safety Report 14400600 (Version 1)
Quarter: 2018Q1

REPORT INFORMATION
  Report Type: Spontaneous
  Country: IN (occurrence: IN)
  Receive Date: 20180117
  Receipt Date: 20180117
  Transmission Date: 20180509
  Serious: Yes (Death, Hospitalization)
  Sender: FDA-Public Use
  Company Number: IN-CIPLA LTD.-2018IN00767

PATIENT

DRUGS (4)
  1. ZOLPIDEM TARTARATE [Suspect]
     Active Substance: ZOLPIDEM TARTRATE
     Indication: RABIES
     Dosage: 12.5 MG, UNK
     Route: 045
  2. MAGNESIUM SULFATE. [Suspect]
     Active Substance: MAGNESIUM SULFATE
     Indication: RABIES
     Dosage: 2 G, UNK
     Route: 042
  3. MIDAZOLAM [Suspect]
     Active Substance: MIDAZOLAM HYDROCHLORIDE
     Indication: RABIES
     Dosage: 1 MG/KG, UNK
     Route: 042
  4. ATROPINE. [Suspect]
     Active Substance: ATROPINE
     Indication: RABIES
     Dosage: 3 MG, UNK
     Route: 042

REACTIONS (3)
  - Pulmonary oedema [Unknown]
  - Respiratory arrest [Fatal]
  - Haematemesis [Unknown]
